FAERS Safety Report 4614780-3 (Version None)
Quarter: 2005Q1

REPORT INFORMATION
  Report Type: 
  Country: None (occurrence: None)
  Receive Date: 20050322
  Receipt Date: 20050309
  Transmission Date: 20050727
  Serious: Yes (Life-Threatening)
  Sender: FDA-Public Use
  Company Number: DE-JNJFOC-20050302334

PATIENT
  Sex: Female
  Weight: 55 kg

DRUGS (7)
  1. DURAGESIC-100 [Suspect]
     Route: 062
  2. LYRICA [Interacting]
     Route: 049
  3. LYRICA [Interacting]
     Indication: NEUROPATHIC PAIN
     Route: 049
  4. NOVALGIN [Concomitant]
     Route: 049
  5. ATOSIL [Concomitant]
     Route: 049
  6. AMITRIPTYLINE HCL [Concomitant]
     Route: 065
  7. UNSPECIFIED DRUG [Concomitant]
     Route: 065

REACTIONS (2)
  - DRUG INTERACTION [None]
  - RESPIRATORY DEPRESSION [None]
